FAERS Safety Report 23518799 (Version 1)
Quarter: 2024Q1

REPORT INFORMATION
  Report Type: Spontaneous
  Country: IL (occurrence: IL)
  Receive Date: 20240213
  Receipt Date: 20240213
  Transmission Date: 20240410
  Serious: Yes (Other)
  Sender: FDA-Public Use
  Company Number: IL-BAYER-2024A020010

PATIENT
  Age: 24 Year
  Sex: Male

DRUGS (8)
  1. LORATADINE\PSEUDOEPHEDRINE SULFATE [Suspect]
     Active Substance: LORATADINE\PSEUDOEPHEDRINE SULFATE
     Dosage: UNK UNK, QD
     Dates: start: 20240123
  2. ACETAMINOPHEN [Concomitant]
     Active Substance: ACETAMINOPHEN
  3. BISMUTH SUBSALICYLATE [Concomitant]
     Active Substance: BISMUTH SUBSALICYLATE
  4. ADVIL LIQUI-GELS [Concomitant]
     Active Substance: IBUPROFEN
  5. AZELASTINE HYDROCHLORIDE [Concomitant]
     Active Substance: AZELASTINE HYDROCHLORIDE
  6. ARCOXIA [Concomitant]
     Active Substance: ETORICOXIB
  7. FLUTICASONE FUROATE [Concomitant]
     Active Substance: FLUTICASONE FUROATE
  8. PROAVENIR [Concomitant]

REACTIONS (12)
  - Arrhythmia [None]
  - Abdominal pain [None]
  - Decreased appetite [None]
  - Dizziness [None]
  - Dry mouth [None]
  - Lacrimation increased [None]
  - Micturition disorder [None]
  - Pollakiuria [None]
  - Dysuria [None]
  - Nausea [None]
  - Oropharyngeal pain [None]
  - Cough [None]
